FAERS Safety Report 9526175 (Version 4)
Quarter: 2019Q3

REPORT INFORMATION
  Report Type: Spontaneous
  Country: US (occurrence: US)
  Receive Date: 20130916
  Receipt Date: 20190926
  Transmission Date: 20191005
  Serious: Yes (Death, Hospitalization, Other)
  Sender: FDA-Public Use
  Company Number: US-MERCK-1309USA005401

PATIENT
  Sex: Male
  Weight: 77.1 kg

DRUGS (3)
  1. ASPIRIN. [Concomitant]
     Active Substance: ASPIRIN
     Indication: CORONARY ARTERY DISEASE
     Dosage: UNK
     Dates: start: 1980, end: 201201
  2. METFORMIN HYDROCHLORIDE (+) SITAGLIPTIN PHOSPHATE [Suspect]
     Active Substance: METFORMIN HYDROCHLORIDE\SITAGLIPTIN PHOSPHATE
     Route: 048
  3. JANUMET [Suspect]
     Active Substance: METFORMIN HYDROCHLORIDE\SITAGLIPTIN PHOSPHATE
     Indication: TYPE 2 DIABETES MELLITUS
     Dosage: 50-500 MG, BID
     Route: 048
     Dates: start: 20080909, end: 201111

REACTIONS (61)
  - Paracentesis [Unknown]
  - Peritonitis bacterial [Unknown]
  - Dizziness [Unknown]
  - Leukocytosis [Unknown]
  - Abdominal hernia [Unknown]
  - Atelectasis [Recovering/Resolving]
  - Hypercholesterolaemia [Unknown]
  - Benign prostatic hyperplasia [Unknown]
  - Abdominal operation [Unknown]
  - Constipation [Recovering/Resolving]
  - Splenectomy [Unknown]
  - Acute respiratory failure [Unknown]
  - Malignant ascites [Unknown]
  - Pyrexia [Unknown]
  - Coagulopathy [Unknown]
  - Cardiomegaly [Unknown]
  - Hepatic cyst [Unknown]
  - Oedema peripheral [Recovering/Resolving]
  - Abdominal hernia repair [Unknown]
  - Hypersensitivity [Unknown]
  - Anaemia of malignant disease [Unknown]
  - White blood cell count increased [Unknown]
  - Weight increased [Unknown]
  - Fluid retention [Unknown]
  - Hyperkalaemia [Unknown]
  - Peripheral vascular disorder [Unknown]
  - Hiatus hernia [Unknown]
  - Drug ineffective [Unknown]
  - Pancreatectomy [Unknown]
  - Cataract [Unknown]
  - Peripancreatic fluid collection [Unknown]
  - Paracentesis [Unknown]
  - Carotid artery stent insertion [Unknown]
  - Metastases to liver [Unknown]
  - Complication associated with device [Unknown]
  - Benign small intestinal neoplasm [Unknown]
  - Treatment failure [Unknown]
  - Pancreatic carcinoma [Fatal]
  - Paracentesis [Unknown]
  - Lung infiltration [Unknown]
  - Oropharyngeal pain [Unknown]
  - Asthma [Unknown]
  - Hypoxia [Unknown]
  - Mental status changes [Unknown]
  - Faecaloma [Recovering/Resolving]
  - Arthritis [Unknown]
  - Nausea [Unknown]
  - Drug ineffective [Unknown]
  - Pneumonia aspiration [Recovering/Resolving]
  - Pneumonia [Unknown]
  - Abscess [Unknown]
  - Radiotherapy [Unknown]
  - Hypoalbuminaemia [Unknown]
  - Atelectasis [Unknown]
  - Diverticulum [Unknown]
  - Cardiac murmur [Unknown]
  - Lethargy [Unknown]
  - Abdominal distension [Not Recovered/Not Resolved]
  - Hypertension [Unknown]
  - Chronic obstructive pulmonary disease [Unknown]
  - Cough [Unknown]

NARRATIVE: CASE EVENT DATE: 2010
